FAERS Safety Report 9605847 (Version 2)
Quarter: 2013Q4

REPORT INFORMATION
  Report Type: Spontaneous
  Country: US (occurrence: US)
  Receive Date: 20131008
  Receipt Date: 20131028
  Transmission Date: 20140711
  Serious: Yes (Other)
  Sender: FDA-Public Use
  Company Number: US-AMGEN-USASP2013068167

PATIENT
  Age: 71 Year
  Sex: Male
  Weight: 56.69 kg

DRUGS (1)
  1. XGEVA [Suspect]
     Indication: PROPHYLAXIS
     Dosage: 120 MG, Q4WK
     Route: 058
     Dates: start: 20130820, end: 20130917

REACTIONS (3)
  - Tooth abscess [Unknown]
  - Localised oedema [Recovering/Resolving]
  - Pain in jaw [Recovered/Resolved]
